FAERS Safety Report 5847192-5 (Version None)
Quarter: 2008Q3

REPORT INFORMATION
  Report Type: 
  Country: None (occurrence: None)
  Receive Date: 20080815
  Receipt Date: 20080811
  Transmission Date: 20090109
  Serious: Yes (Death)
  Sender: FDA-Public Use
  Company Number: PHBS2008DE05378

PATIENT

DRUGS (3)
  1. CYCLOSPORINE [Suspect]
     Indication: STEM CELL TRANSPLANT
  2. FLUDARABINE [Suspect]
     Indication: STEM CELL TRANSPLANT
  3. CHEMOTHERAPEUTICS NOS [Suspect]
     Indication: STEM CELL TRANSPLANT
     Route: 037

REACTIONS (2)
  - LEUKOENCEPHALOPATHY [None]
  - NEUROTOXICITY [None]
